FAERS Safety Report 18398350 (Version 1)
Quarter: 2020Q4

REPORT INFORMATION
  Report Type: Spontaneous
  Country: JP (occurrence: JP)
  Receive Date: 20201019
  Receipt Date: 20201019
  Transmission Date: 20210114
  Serious: Yes (Other)
  Sender: FDA-Public Use
  Company Number: JP-BAUSCH-BL-2020-028497

PATIENT
  Age: 12 Month
  Sex: Female

DRUGS (1)
  1. MIKELAN OPHTHALMIC SOLUTION 2 PERCENT [Suspect]
     Active Substance: CARTEOLOL HYDROCHLORIDE
     Indication: GLAUCOMA
     Route: 047
     Dates: start: 201902, end: 201911

REACTIONS (1)
  - Hypoglycaemia [Recovered/Resolved]

NARRATIVE: CASE EVENT DATE: 20191127
